FAERS Safety Report 20576060 (Version 2)
Quarter: 2022Q2

REPORT INFORMATION
  Report Type: Spontaneous
  Country: AR (occurrence: AR)
  Receive Date: 20220310
  Receipt Date: 20220414
  Transmission Date: 20220721
  Serious: Yes (Other)
  Sender: FDA-Public Use
  Company Number: AR-PFIZER INC-202200333904

PATIENT
  Age: 54 Year
  Sex: Female

DRUGS (1)
  1. ENBREL [Suspect]
     Active Substance: ETANERCEPT
     Indication: Rheumatoid arthritis
     Dosage: 50 MG, WEEKLY
     Route: 065
     Dates: start: 20200303

REACTIONS (1)
  - Spinal disorder [Unknown]

NARRATIVE: CASE EVENT DATE: 20210820
